FAERS Safety Report 23443043 (Version 2)
Quarter: 2024Q1

REPORT INFORMATION
  Report Type: Spontaneous
  Country: BR (occurrence: BR)
  Receive Date: 20240125
  Receipt Date: 20240222
  Transmission Date: 20240409
  Serious: Yes (Hospitalization)
  Sender: FDA-Public Use
  Company Number: BR-PFIZER INC-PV202400010852

PATIENT
  Age: 15 Year
  Sex: Male

DRUGS (2)
  1. TALIGLUCERASE ALFA [Suspect]
     Active Substance: TALIGLUCERASE ALFA
     Indication: Gaucher^s disease
     Dosage: 15 VIALS EVERY 14 DAYS
     Route: 042
  2. TALIGLUCERASE ALFA [Suspect]
     Active Substance: TALIGLUCERASE ALFA
     Dosage: UNK
     Route: 042
     Dates: start: 20230428, end: 20230428

REACTIONS (7)
  - Fatigue [Unknown]
  - Tachycardia [Unknown]
  - Dyspnoea [Unknown]
  - Abdominal pain [Unknown]
  - Dengue fever [Unknown]
  - Petechiae [Unknown]
  - Blood pressure decreased [Unknown]

NARRATIVE: CASE EVENT DATE: 20230428
